FAERS Safety Report 5289466-5 (Version None)
Quarter: 2007Q2

REPORT INFORMATION
  Report Type: 
  Country: None (occurrence: None)
  Receive Date: 20070406
  Receipt Date: 20070323
  Transmission Date: 20071010
  Serious: Yes (Hospitalization, Other)
  Sender: FDA-Public Use
  Company Number: US-AMGEN-US216593

PATIENT
  Sex: Female

DRUGS (3)
  1. ENBREL [Suspect]
     Indication: RHEUMATOID ARTHRITIS
     Route: 058
     Dates: start: 20000223
  2. PLAQUENIL [Concomitant]
     Route: 048
     Dates: start: 19920101
  3. METHOTREXATE [Concomitant]
     Route: 058
     Dates: start: 19970101

REACTIONS (8)
  - COUGH [None]
  - DYSPHONIA [None]
  - EMPHYSEMA [None]
  - NORMAL TENSION GLAUCOMA [None]
  - POSTOPERATIVE WOUND INFECTION [None]
  - RHEUMATOID ARTHRITIS [None]
  - RHEUMATOID LUNG [None]
  - SPEECH DISORDER [None]
